FAERS Safety Report 17906543 (Version 1)
Quarter: 2020Q2

REPORT INFORMATION
  Report Type: Spontaneous
  Country: US (occurrence: US)
  Receive Date: 20200616
  Receipt Date: 20200616
  Transmission Date: 20200714
  Serious: Yes (Hospitalization)
  Sender: FDA-Public Use
  Company Number: None

PATIENT
  Age: 60 Year
  Sex: Female

DRUGS (13)
  1. MONTELUKAST [Concomitant]
     Active Substance: MONTELUKAST SODIUM
  2. METOPROLOL TARTRATE. [Concomitant]
     Active Substance: METOPROLOL TARTRATE
  3. NUCALA [Suspect]
     Active Substance: MEPOLIZUMAB
     Indication: ASTHMA
     Dosage: ?          OTHER FREQUENCY:EVERY 4 WEEKS.;?
     Route: 058
     Dates: start: 20180613
  4. BUDESONIDE. [Concomitant]
     Active Substance: BUDESONIDE
  5. TORSEMIDE. [Concomitant]
     Active Substance: TORSEMIDE
  6. STIOLTO INHALER [Concomitant]
  7. NYSTATIN/TRIAM CREAM [Concomitant]
  8. VITAMIN D3 [Concomitant]
     Active Substance: CHOLECALCIFEROL
  9. HUMULIN R [Concomitant]
     Active Substance: INSULIN HUMAN
  10. ROSUVASTATIN. [Concomitant]
     Active Substance: ROSUVASTATIN
  11. CLINDAMYCIN. [Concomitant]
     Active Substance: CLINDAMYCIN
  12. ELIQUIS [Concomitant]
     Active Substance: APIXABAN
  13. AMMONIUM LAC LOTION [Concomitant]

REACTIONS (3)
  - Product use issue [None]
  - Therapy interrupted [None]
  - Hospitalisation [None]
